FAERS Safety Report 13300328 (Version 2)
Quarter: 2017Q2

REPORT INFORMATION
  Report Type: Spontaneous
  Country: US (occurrence: US)
  Receive Date: 20170307
  Receipt Date: 20170503
  Transmission Date: 20170830
  Serious: No
  Sender: FDA-Public Use
  Company Number: US-BIOGEN-2017BI00364425

PATIENT
  Sex: Female

DRUGS (11)
  1. TRAMADOL. [Concomitant]
     Active Substance: TRAMADOL
     Indication: PAIN
     Dosage: TAKE 2 TABLET BY ORAL ROUTE 4 TIMES EVERY DAY AS NEEDED FOR SEVERE PAIN.
     Route: 048
  2. BUTISOL [Concomitant]
     Indication: PRODUCT USED FOR UNKNOWN INDICATION
     Dosage: TAKE 1 TABLET BY ORAL ROUTE EVERY 4 HOURS PRN DO NOT EXCEED IN 24 HOUR PERIOD.
     Route: 048
  3. PLEGRIDY [Concomitant]
     Active Substance: PEGINTERFERON BETA-1A
     Route: 058
  4. NUEDEXTA [Concomitant]
     Active Substance: DEXTROMETHORPHAN HYDROBROMIDE\QUINIDINE SULFATE
     Dosage: 1 CAPSULE BY ORAL ROUTE 2 TIMES EVERY DAY
     Route: 048
  5. PLEGRIDY [Concomitant]
     Active Substance: PEGINTERFERON BETA-1A
     Indication: MULTIPLE SCLEROSIS
     Route: 058
  6. NUEDEXTA [Concomitant]
     Active Substance: DEXTROMETHORPHAN HYDROBROMIDE\QUINIDINE SULFATE
     Indication: PRODUCT USED FOR UNKNOWN INDICATION
     Dosage: 1 CAPSULE BY ORAL ROUTE 2 TIMES EVERY DAY
     Route: 048
  7. MEDROL [Concomitant]
     Active Substance: METHYLPREDNISOLONE
     Indication: PRODUCT USED FOR UNKNOWN INDICATION
     Dosage: TAKE BY ORAL ROUTE AS DIRECTED.
     Route: 048
  8. TECFIDERA [Suspect]
     Active Substance: DIMETHYL FUMARATE
     Indication: MULTIPLE SCLEROSIS
     Route: 065
     Dates: start: 20160603, end: 20160817
  9. TIZANIDINE. [Concomitant]
     Active Substance: TIZANIDINE
     Indication: MUSCLE SPASMS
     Dosage: TAKE 1 TABLET 4MG BY ORAL ROUTE 4 TIMES A DAY AS NEEDED FOR MUSCLE SPASM FOR MS
     Route: 048
  10. VENTOLIN [Concomitant]
     Active Substance: ALBUTEROL SULFATE
     Indication: PRODUCT USED FOR UNKNOWN INDICATION
     Dosage: INHALE 2 PUFFS BY INHALATION ROUTE EVERY 4-6 HOURS AS NEEDED.
     Route: 065
  11. XANAX [Concomitant]
     Active Substance: ALPRAZOLAM
     Indication: PRODUCT USED FOR UNKNOWN INDICATION
     Dosage: TAKE 1 TABLET BY ORAL ROUTE  3 TIMES EVERY DAY AS NEEDED.
     Route: 048

REACTIONS (2)
  - Drug intolerance [Unknown]
  - Treatment failure [Unknown]
